FAERS Safety Report 21160635 (Version 1)
Quarter: 2022Q3

REPORT INFORMATION
  Report Type: Spontaneous
  Country: US (occurrence: None)
  Receive Date: 20220801
  Receipt Date: 20220801
  Transmission Date: 20221026
  Serious: Yes (Disabling)
  Sender: FDA-Public Use
  Company Number: None

PATIENT

DRUGS (1)
  1. ALUMINUM ZIRCONIUM TRICHLOROHYDREX GLY [Suspect]
     Active Substance: ALUMINUM ZIRCONIUM TRICHLOROHYDREX GLY
     Dosage: 4 DAYS IN A ROW  TOPICAL
     Route: 061
     Dates: start: 202207

REACTIONS (8)
  - Chemical burn of skin [None]
  - Pain of skin [None]
  - Skin exfoliation [None]
  - Alopecia [None]
  - Skin irritation [None]
  - Erythema [None]
  - Mobility decreased [None]
  - Impaired work ability [None]

NARRATIVE: CASE EVENT DATE: 20220709
